FAERS Safety Report 7468541-0 (Version None)
Quarter: 2011Q2

REPORT INFORMATION
  Report Type: 
  Country: None (occurrence: None)
  Receive Date: 20110509
  Receipt Date: 20110427
  Transmission Date: 20111010
  Serious: Yes (Other)
  Sender: FDA-Public Use
  Company Number: FI-BAYER-2011-035748

PATIENT
  Age: 79 Year
  Sex: Male

DRUGS (12)
  1. FURESIS [Concomitant]
     Route: 048
  2. SIMVASTATIN [Concomitant]
     Dosage: 20 MG, QD
     Route: 048
  3. SPIRIVA [Concomitant]
  4. METFOREM [Concomitant]
  5. SERETIDE DISKUS [Concomitant]
  6. EMCONCOR CHF [Concomitant]
     Dosage: 2.5 MG, QD
     Route: 048
  7. CIPROFLOXACIN [Suspect]
     Indication: URINARY TRACT INFECTION
     Dosage: 250 MG, BID
     Route: 048
     Dates: start: 20110221, end: 20110224
  8. LINATIL [Concomitant]
     Dosage: 10 MG, QD
     Route: 048
  9. APURIN [Concomitant]
  10. MAREVAN [Concomitant]
  11. SOMAC [Concomitant]
     Dosage: 40 MG, QD
     Route: 048
  12. CASODEX [Concomitant]
     Dosage: 150 MG, UNK
     Route: 048

REACTIONS (4)
  - DIARRHOEA [None]
  - INFECTIVE TENOSYNOVITIS [None]
  - TENDON PAIN [None]
  - LOCALISED OEDEMA [None]
